FAERS Safety Report 16878135 (Version 1)
Quarter: 2019Q4

REPORT INFORMATION
  Report Type: Spontaneous
  Country: GB (occurrence: GB)
  Receive Date: 20191002
  Receipt Date: 20191002
  Transmission Date: 20200122
  Serious: Yes (Hospitalization)
  Sender: FDA-Public Use
  Company Number: GB-GALDERMA-GB19060956

PATIENT
  Age: 45 Year
  Sex: Female

DRUGS (2)
  1. METRONIDAZOLE. [Suspect]
     Active Substance: METRONIDAZOLE
     Indication: BACTERIAL VAGINOSIS
     Route: 061
  2. COSENTYX [Concomitant]
     Active Substance: SECUKINUMAB
     Indication: PSORIASIS
     Route: 058
     Dates: start: 20181130

REACTIONS (7)
  - Vomiting [Recovered/Resolved]
  - Bacterial vaginosis [Recovered/Resolved]
  - Diarrhoea [Recovered/Resolved]
  - Gynaecological examination abnormal [Unknown]
  - Abdominal pain [Unknown]
  - Ill-defined disorder [Recovered/Resolved]
  - Product use in unapproved indication [Recovered/Resolved]

NARRATIVE: CASE EVENT DATE: 20190415
